FAERS Safety Report 8347765 (Version 2)
Quarter: 2012Q4

REPORT INFORMATION
  Report Type: Report from Study
  Country: DE (occurrence: DE)
  Receive Date: 20120122
  Receipt Date: 20121024
  Transmission Date: 20130627
  Serious: Yes (Hospitalization, Other)
  Sender: FDA-Public Use
  Company Number: DE-TEVA-317213GER

PATIENT
  Age: 64 Year
  Sex: Female
  Weight: 74 kg

DRUGS (9)
  1. MYOCET [Suspect]
     Indication: BREAST CANCER
     Route: 042
     Dates: start: 20111117
  2. MYOCET [Suspect]
     Route: 042
     Dates: start: 20120119
  3. CARBOPLATIN [Suspect]
     Indication: BREAST CANCER
     Route: 042
     Dates: start: 20111117
  4. CARBOPLATIN [Suspect]
     Route: 042
     Dates: start: 20120119
  5. PACLITAXEL [Suspect]
     Indication: BREAST CANCER
     Route: 042
     Dates: start: 20111117
  6. PACLITAXEL [Suspect]
     Route: 042
     Dates: start: 20120119
  7. HERCEPTIN [Suspect]
     Indication: BREAST CANCER
     Route: 042
     Dates: start: 20111117
  8. LAPATINIB [Suspect]
     Indication: BREAST CANCER
     Route: 048
     Dates: start: 20111118
  9. LAPATINIB [Suspect]
     Route: 048
     Dates: start: 20120119, end: 20120223

REACTIONS (2)
  - Fatigue [Recovered/Resolved]
  - White blood cell count decreased [Recovered/Resolved]
